FAERS Safety Report 15111259 (Version 1)
Quarter: 2018Q3

REPORT INFORMATION
  Report Type: Spontaneous
  Country: BR (occurrence: BR)
  Receive Date: 20180705
  Receipt Date: 20180705
  Transmission Date: 20181010
  Serious: Yes (Hospitalization, Other)
  Sender: FDA-Public Use
  Company Number: BR-NAPPMUNDI-GBR-2018-0056292

PATIENT
  Age: 58 Year
  Sex: Female

DRUGS (6)
  1. DIPYRONE [Concomitant]
     Active Substance: DIPYRONE
     Indication: ANALGESIC THERAPY
     Dosage: 1 TABLET, Q4H [500 MG OR 1 G EVERY 4 HOURS]
     Route: 048
  2. MORPHINE [Concomitant]
     Active Substance: MORPHINE
     Dosage: UNK
  3. RESTIVA [Suspect]
     Active Substance: BUPRENORPHINE
     Indication: PAIN
     Dosage: 3 PATCH, WEEKLY [10MG STRENGTH]
     Route: 062
     Dates: start: 20170601, end: 20180513
  4. DIMORF [Concomitant]
     Active Substance: MORPHINE SULFATE
     Indication: ANALGESIC THERAPY
     Dosage: 1 TABLET, Q6H (STRENGTH 10 MG)
     Route: 048
  5. FOLIC ACID. [Concomitant]
     Active Substance: FOLIC ACID
     Indication: ANAEMIA
  6. AMITRIPTYLINE [Concomitant]
     Active Substance: AMITRIPTYLINE
     Indication: HYPOTONIA
     Dosage: 1 TABLET, DAILY
     Route: 048

REACTIONS (5)
  - Fall [Unknown]
  - Wrong technique in product usage process [Unknown]
  - Pain [Unknown]
  - Metastases to liver [Unknown]
  - Off label use [Unknown]

NARRATIVE: CASE EVENT DATE: 20180513
